FAERS Safety Report 24576697 (Version 2)
Quarter: 2024Q4

REPORT INFORMATION
  Report Type: Report from Study
  Country: GB (occurrence: GB)
  Receive Date: 20241104
  Receipt Date: 20241122
  Transmission Date: 20250114
  Serious: Yes (Death, Other)
  Sender: ROCHE
  Company Number: GB-ROCHE-10000063527

PATIENT
  Age: 74 Year
  Sex: Male
  Weight: 61.1 kg

DRUGS (13)
  1. ATEZOLIZUMAB [Suspect]
     Active Substance: ATEZOLIZUMAB
     Indication: Hepatocellular carcinoma
     Dosage: START DATE  AND END DATE OF MOST RECENT DOSE 1875 MG OF STUDY DRUG PRIOR TO AE AND SAE: 22-MAY-2024
     Route: 042
     Dates: start: 20230112
  2. ATEZOLIZUMAB [Suspect]
     Active Substance: ATEZOLIZUMAB
     Dosage: START DATE  AND END DATE OF MOST RECENT DOSE 1875 MG OF STUDY DRUG PRIOR TO AE AND SAE: 08-AUG-2024
     Route: 042
     Dates: start: 20230112
  3. BEVACIZUMAB [Suspect]
     Active Substance: BEVACIZUMAB
     Indication: Hepatocellular carcinoma
     Route: 065
     Dates: start: 20230112
  4. SPIRONOLACTONE [Concomitant]
     Active Substance: SPIRONOLACTONE
     Dosage: OTHER
  5. FUROSEMIDE [Concomitant]
     Active Substance: FUROSEMIDE
     Dosage: OTHER
  6. RIFAXIMIN [Concomitant]
     Active Substance: RIFAXIMIN
  7. LINAGLIPTIN [Concomitant]
     Active Substance: LINAGLIPTIN
  8. METFORMIN [Concomitant]
     Active Substance: METFORMIN HYDROCHLORIDE
  9. BISOPROLOL [Concomitant]
     Active Substance: BISOPROLOL
  10. EZETIMIBE [Concomitant]
     Active Substance: EZETIMIBE
  11. OMEPRAZOLE [Concomitant]
     Active Substance: OMEPRAZOLE
  12. GLICLAZIDE [Concomitant]
     Active Substance: GLICLAZIDE
     Dosage: OTHER
  13. CALCIUM CARBONATE\CHOLECALCIFEROL [Concomitant]
     Active Substance: CALCIUM CARBONATE\CHOLECALCIFEROL

REACTIONS (2)
  - Hyperkalaemia [Recovered/Resolved]
  - Death [Fatal]

NARRATIVE: CASE EVENT DATE: 20240613
